FAERS Safety Report 13550434 (Version 1)
Quarter: 2017Q2

REPORT INFORMATION
  Report Type: Spontaneous
  Country: US (occurrence: US)
  Receive Date: 20170516
  Receipt Date: 20170516
  Transmission Date: 20170830
  Serious: Yes (Hospitalization)
  Sender: FDA-Public Use
  Company Number: None

PATIENT
  Age: 54 Year
  Sex: Female

DRUGS (3)
  1. REMICADE [Suspect]
     Active Substance: INFLIXIMAB
     Indication: CROHN^S DISEASE
     Dosage: FREQUENCY - WK 0, 2, 6
     Route: 042
     Dates: start: 20170420, end: 20170503
  2. IMURAN [Concomitant]
     Active Substance: AZATHIOPRINE
  3. ATORVASTATIN [Concomitant]
     Active Substance: ATORVASTATIN

REACTIONS (3)
  - Infusion related reaction [None]
  - Anaphylactic shock [None]
  - Vomiting [None]

NARRATIVE: CASE EVENT DATE: 20170503
